FAERS Safety Report 14649552 (Version 4)
Quarter: 2019Q3

REPORT INFORMATION
  Report Type: Report from Study
  Country: US (occurrence: US)
  Receive Date: 20180316
  Receipt Date: 20190814
  Transmission Date: 20191004
  Serious: Yes (Hospitalization, Other)
  Sender: FDA-Public Use
  Company Number: US-SA-2018SA076752

PATIENT
  Age: 81 Year
  Sex: Female

DRUGS (4)
  1. ALIROCUMAB PREFILLED PEN [Suspect]
     Active Substance: ALIROCUMAB
     Indication: HYPERLIPIDAEMIA
     Dosage: 75 MG, QOW
     Route: 058
     Dates: start: 201801
  2. ALIROCUMAB [Suspect]
     Active Substance: ALIROCUMAB
     Indication: PROPHYLAXIS
  3. ALIROCUMAB [Suspect]
     Active Substance: ALIROCUMAB
     Indication: HYPERLIPIDAEMIA
     Dosage: 75 MG/ML, QOW
     Route: 058
     Dates: start: 201801
  4. ALIROCUMAB PREFILLED PEN [Suspect]
     Active Substance: ALIROCUMAB
     Indication: PROPHYLAXIS

REACTIONS (11)
  - Weight decreased [Unknown]
  - Dysphagia [Unknown]
  - Hospitalisation [Unknown]
  - Memory impairment [Unknown]
  - Diverticulitis [Unknown]
  - Memory impairment [Recovered/Resolved]
  - Diarrhoea [Unknown]
  - Gastrointestinal pain [Unknown]
  - White coat hypertension [Recovered/Resolved]
  - Oesophageal pain [Unknown]
  - Back disorder [Unknown]

NARRATIVE: CASE EVENT DATE: 201802
